FAERS Safety Report 11444644 (Version 1)
Quarter: 2015Q3

REPORT INFORMATION
  Report Type: Spontaneous
  Country: CO (occurrence: None)
  Receive Date: 20150831
  Receipt Date: 20150831
  Transmission Date: 20151125
  Serious: Yes (Disabling)
  Sender: FDA-Public Use
  Company Number: None

PATIENT
  Age: 22 Year
  Sex: Female
  Weight: 54 kg

DRUGS (5)
  1. COFFEE [Concomitant]
     Active Substance: ARABICA COFFEE BEAN\COFFEE BEAN
  2. VIGIA (MODAFINIL) [Suspect]
     Active Substance: MODAFINIL
     Indication: DYSPNOEA
     Dosage: 1 PILL C/12 HORAS AS NEEDED TAKEN BY MOUTH
     Route: 048
     Dates: start: 20130910, end: 20150809
  3. ISOFACE (ISOTRETIONINE) [Concomitant]
  4. CHLORPHENIRAMINE. [Concomitant]
     Active Substance: CHLORPHENIRAMINE
  5. ALERSEC [Concomitant]

REACTIONS (5)
  - Dyspnoea [None]
  - Chest pain [None]
  - Nausea [None]
  - Hypersensitivity [None]
  - Dizziness [None]

NARRATIVE: CASE EVENT DATE: 20150809
